APPROVED DRUG PRODUCT: PROMETHAZINE HYDROCHLORIDE
Active Ingredient: PROMETHAZINE HYDROCHLORIDE
Strength: 25MG
Dosage Form/Route: TABLET;ORAL
Application: A084176 | Product #003 | TE Code: AB
Applicant: SANDOZ INC
Approved: Approved Prior to Jan 1, 1982 | RLD: Yes | RS: No | Type: RX